FAERS Safety Report 8308701-X (Version None)
Quarter: 2012Q1

REPORT INFORMATION
  Report Type: 
  Country: None (occurrence: None)
  Receive Date: 20120327
  Receipt Date: 20110211
  Transmission Date: 20120608
  Serious: Yes (Hospitalization, Other)
  Sender: FDA-Public Use
  Company Number: PHHY2011US11596

PATIENT
  Sex: Female

DRUGS (1)
  1. GLEEVEC [Suspect]
     Indication: CHRONIC MYELOID LEUKAEMIA
     Dosage: 400 MG, DAILY, ORAL
     Route: 048

REACTIONS (3)
  - PLATELET COUNT DECREASED [None]
  - WHITE BLOOD CELL COUNT INCREASED [None]
  - MALAISE [None]
